FAERS Safety Report 6765115-1 (Version None)
Quarter: 2010Q2

REPORT INFORMATION
  Report Type: 
  Country: None (occurrence: None)
  Receive Date: 20100609
  Receipt Date: 20100609
  Transmission Date: 20101027
  Serious: No
  Sender: FDA-Public Use
  Company Number: None

PATIENT
  Age: 52 Year
  Sex: Male
  Weight: 108.8633 kg

DRUGS (2)
  1. SERTRALINE HCL [Suspect]
     Indication: DEPRESSION
     Dosage: 1 TAB DAILY PO
     Route: 048
     Dates: start: 20080715, end: 20100511
  2. SERTRALINE HCL [Suspect]
     Indication: MOOD SWINGS
     Dosage: 1 TAB DAILY PO
     Route: 048
     Dates: start: 20080715, end: 20100511

REACTIONS (3)
  - EPICONDYLITIS [None]
  - MYALGIA [None]
  - PAIN IN EXTREMITY [None]
